FAERS Safety Report 13333283 (Version 1)
Quarter: 2017Q1

REPORT INFORMATION
  Report Type: Spontaneous
  Country: US (occurrence: US)
  Receive Date: 20170314
  Receipt Date: 20170314
  Transmission Date: 20170428
  Serious: No
  Sender: FDA-Public Use
  Company Number: US-PFIZER INC-2017103794

PATIENT
  Age: 50 Year
  Sex: Female

DRUGS (1)
  1. IBRANCE [Suspect]
     Active Substance: PALBOCICLIB
     Indication: BREAST CANCER FEMALE
     Dosage: 125 MG, CYCLIC (ONE DAILY FOR 21 DAY)
     Route: 048
     Dates: start: 20161111

REACTIONS (2)
  - Onychoclasis [Unknown]
  - Nail disorder [Unknown]

NARRATIVE: CASE EVENT DATE: 20170307
